FAERS Safety Report 16290507 (Version 9)
Quarter: 2022Q2

REPORT INFORMATION
  Report Type: Other
  Country: JP (occurrence: JP)
  Receive Date: 20190509
  Receipt Date: 20220528
  Transmission Date: 20220721
  Serious: Yes (Death, Life-Threatening, Hospitalization, Other)
  Sender: FDA-Public Use
  Company Number: JP-CHUGAI-A2019018349ROCHE

PATIENT
  Age: 71 Year
  Sex: Female
  Weight: 37 kg

DRUGS (1)
  1. TECENTRIQ [Suspect]
     Active Substance: ATEZOLIZUMAB
     Indication: Lung adenocarcinoma
     Route: 041
     Dates: start: 20190410, end: 20190410

REACTIONS (16)
  - Death [Fatal]
  - Pyrexia [Recovering/Resolving]
  - Stomatitis [Recovering/Resolving]
  - Oedema peripheral [Recovering/Resolving]
  - C-reactive protein increased [Recovering/Resolving]
  - Pancytopenia [Unknown]
  - Ascites [Unknown]
  - Pleural effusion [Unknown]
  - Rash [Recovering/Resolving]
  - Toxic skin eruption [Recovering/Resolving]
  - Infusion related reaction [Recovering/Resolving]
  - Hepatitis [Recovering/Resolving]
  - Pancreatitis [Unknown]
  - Generalised oedema [Unknown]
  - Colitis [Recovered/Resolved]
  - Liver disorder [Recovered/Resolved]

NARRATIVE: CASE EVENT DATE: 20190420
